FAERS Safety Report 25192238 (Version 1)
Quarter: 2025Q2

REPORT INFORMATION
  Report Type: Spontaneous
  Country: US (occurrence: None)
  Receive Date: 20250414
  Receipt Date: 20250414
  Transmission Date: 20250717
  Serious: Yes (Other)
  Sender: FDA-CTU
  Company Number: None

PATIENT
  Sex: Male
  Weight: 81 kg

DRUGS (4)
  1. VOQUEZNA [Suspect]
     Active Substance: VONOPRAZAN FUMARATE
     Indication: Gastrooesophageal reflux disease
     Route: 048
     Dates: start: 20241122
  2. VOQUEZNA [Concomitant]
     Active Substance: VONOPRAZAN FUMARATE
  3. AMOXICILLIN [Concomitant]
     Active Substance: AMOXICILLIN
  4. TYLENOL [Concomitant]
     Active Substance: ACETAMINOPHEN

REACTIONS (8)
  - Eye movement disorder [None]
  - Vision blurred [None]
  - Oropharyngeal pain [None]
  - Pharyngeal hypoaesthesia [None]
  - Libido decreased [None]
  - Oesophageal pain [None]
  - Hypoaesthesia [None]
  - Oesophageal disorder [None]
